FAERS Safety Report 5011474-X (Version None)
Quarter: 2006Q2

REPORT INFORMATION
  Report Type: 
  Country: None (occurrence: None)
  Receive Date: 20060404
  Receipt Date: 20060123
  Transmission Date: 20061013
  Serious: No
  Sender: FDA-Public Use
  Company Number: US200601003760

PATIENT
  Age: 51 Year
  Sex: Male

DRUGS (2)
  1. CYMBALTA [Suspect]
     Indication: DEPRESSION
     Dosage: 20 MG
     Dates: start: 20050101
  2. PROZAC [Suspect]
     Indication: DEPRESSION
     Dosage: 10 MG

REACTIONS (3)
  - FATIGUE [None]
  - FEELING ABNORMAL [None]
  - NERVOUSNESS [None]
